FAERS Safety Report 22063548 (Version 1)
Quarter: 2023Q1

REPORT INFORMATION
  Report Type: Report from Study
  Country: US (occurrence: US)
  Receive Date: 20230306
  Receipt Date: 20230306
  Transmission Date: 20230417
  Serious: Yes (Other)
  Sender: FDA-Public Use
  Company Number: US-TAKEDA-2021TUS003840

PATIENT
  Sex: Female
  Weight: 68 kg

DRUGS (3)
  1. VEDOLIZUMAB [Suspect]
     Active Substance: VEDOLIZUMAB
     Indication: Crohn^s disease
     Dosage: 300 MILLIGRAM, Q6WEEKS
     Route: 042
     Dates: start: 202010
  2. VEDOLIZUMAB [Suspect]
     Active Substance: VEDOLIZUMAB
     Indication: Colitis ulcerative
     Dosage: 300 MILLIGRAM
     Route: 042
     Dates: start: 202107
  3. PREDNISONE [Concomitant]
     Active Substance: PREDNISONE
     Indication: Nasal congestion
     Dosage: UNK

REACTIONS (9)
  - Pulmonary fibrosis [Unknown]
  - Pneumonia [Unknown]
  - COVID-19 [Unknown]
  - Off label use [Unknown]
  - Wheezing [Unknown]
  - Dyspnoea [Unknown]
  - Nasopharyngitis [Unknown]
  - Fatigue [Unknown]
  - Cough [Unknown]
